FAERS Safety Report 6170168-8 (Version None)
Quarter: 2009Q2

REPORT INFORMATION
  Report Type: 
  Country: None (occurrence: None)
  Receive Date: 20090428
  Receipt Date: 20090421
  Transmission Date: 20091009
  Serious: Yes (Hospitalization)
  Sender: FDA-Public Use
  Company Number: US-BAYER-200915774NA

PATIENT
  Age: 55 Year
  Sex: Male
  Weight: 99 kg

DRUGS (15)
  1. NEXAVAR [Suspect]
     Indication: METASTATIC RENAL CELL CARCINOMA
     Dosage: TOTAL DAILY DOSE: 400 MG  UNIT DOSE: 200 MG
     Route: 048
     Dates: start: 20080926, end: 20090318
  2. RAD 001 / EVEROLIMUS [Suspect]
     Indication: METASTATIC RENAL CELL CARCINOMA
     Dosage: WEEKLY (COMPLETED 6 COURSES)
     Route: 048
     Dates: start: 20080926, end: 20090306
  3. RAD 001 / EVEROLIMUS [Suspect]
     Route: 048
     Dates: start: 20090319
  4. TRAMADOL HCL [Concomitant]
     Indication: PROCEDURAL PAIN
     Dosage: Q 4-6 H
     Route: 048
     Dates: start: 19960101
  5. LEVOTHYROXINE SODIUM [Concomitant]
     Indication: HYPOTHYROIDISM
     Dosage: TOTAL DAILY DOSE: 50 ?G
     Route: 048
     Dates: start: 20030101
  6. VALTREX [Concomitant]
     Indication: ANTIVIRAL PROPHYLAXIS
     Dosage: TOTAL DAILY DOSE: 500 MG
     Route: 048
     Dates: start: 19970101
  7. CELEBREX [Concomitant]
     Indication: ARTHRALGIA
     Dosage: TOTAL DAILY DOSE: 200 MG
     Route: 048
     Dates: start: 19990101
  8. VITAMIN E [Concomitant]
     Indication: SUPPLEMENTATION THERAPY
     Dosage: TOTAL DAILY DOSE: 400 IU
     Route: 048
     Dates: start: 20080914
  9. ANDROGEL [Concomitant]
     Indication: HYPOGONADISM
     Dosage: TOTAL DAILY DOSE: 1 %
     Route: 058
     Dates: start: 20081003
  10. CENTRUM SILVER MVI [Concomitant]
     Indication: SUPPLEMENTATION THERAPY
     Route: 048
  11. ZOFRAN [Concomitant]
     Indication: NAUSEA
     Route: 048
     Dates: start: 20081205
  12. NEXIUM [Concomitant]
     Indication: DYSPEPSIA
     Dosage: TOTAL DAILY DOSE: 40 MG
     Route: 048
     Dates: start: 20081102
  13. IMODIUM [Concomitant]
     Indication: DIARRHOEA
     Dosage: 1-2 TABS
     Route: 048
     Dates: start: 20081217
  14. EFFEXOR XR [Concomitant]
     Indication: DEPRESSION
     Dosage: TOTAL DAILY DOSE: 75 MG
     Route: 048
     Dates: start: 20090213
  15. COMPAZINE [Concomitant]
     Indication: NAUSEA
     Route: 048

REACTIONS (3)
  - MYOCARDIAL INFARCTION [None]
  - MYOCARDIAL ISCHAEMIA [None]
  - TROPONIN INCREASED [None]
